FAERS Safety Report 21946870 (Version 1)
Quarter: 2023Q1

REPORT INFORMATION
  Report Type: Spontaneous
  Country: DE (occurrence: DE)
  Receive Date: 20230202
  Receipt Date: 20230202
  Transmission Date: 20230418
  Serious: Yes (Other)
  Sender: FDA-Public Use
  Company Number: None

PATIENT

DRUGS (1)
  1. CYTOTEC [Suspect]
     Active Substance: MISOPROSTOL
     Indication: Labour induction
     Dates: start: 20140414, end: 20140414

REACTIONS (2)
  - Foetal exposure during delivery [Unknown]
  - Neonatal hypoxia [Recovered/Resolved with Sequelae]

NARRATIVE: CASE EVENT DATE: 20140414
